FAERS Safety Report 8244855-1 (Version None)
Quarter: 2012Q1

REPORT INFORMATION
  Report Type: 
  Country: None (occurrence: None)
  Receive Date: 20120329
  Receipt Date: 20110812
  Transmission Date: 20120608
  Serious: No
  Sender: FDA-Public Use
  Company Number: US-MYLANLABS-2011S1013143

PATIENT
  Age: 52 Year
  Sex: Male

DRUGS (5)
  1. LYRICA [Concomitant]
  2. DEXILANT [Concomitant]
     Indication: GASTROOESOPHAGEAL REFLUX DISEASE
  3. FENTANYL-100 [Suspect]
     Indication: BACK PAIN
     Dosage: CHANGED Q72H
     Route: 062
     Dates: start: 20100101
  4. OXYCONTIN [Concomitant]
     Indication: PAIN
  5. PERCOCET [Concomitant]
     Indication: PAIN

REACTIONS (4)
  - DRUG EFFECT DECREASED [None]
  - DRUG EFFECT INCREASED [None]
  - PAIN [None]
  - COGNITIVE DISORDER [None]
